FAERS Safety Report 14894536 (Version 1)
Quarter: 2018Q2

REPORT INFORMATION
  Report Type: Spontaneous
  Country: FR (occurrence: FR)
  Receive Date: 20180515
  Receipt Date: 20180515
  Transmission Date: 20180711
  Serious: Yes (Hospitalization)
  Sender: FDA-Public Use
  Company Number: FR-TEVA-2018-FR-892796

PATIENT
  Age: 71 Year
  Sex: Female
  Weight: 60 kg

DRUGS (9)
  1. MOVICOL [Concomitant]
     Active Substance: POLYETHYLENE GLYCOL 3350\POTASSIUM CHLORIDE\SODIUM BICARBONATE\SODIUM CHLORIDE
     Route: 047
  2. LASILIX 40 MG, COMPRIM? S?CABLE [Concomitant]
     Active Substance: FUROSEMIDE
     Dosage: 1 DOSAGE FORMS DAILY;
     Route: 048
  3. DIAMICRON 30 MG, COMPRIM? ? LIB?RATION MODIFI?E [Concomitant]
     Dosage: 1 DOSAGE FORMS DAILY;
     Route: 048
  4. LIPANTHYL 160 MG, COMPRIM? PELLICUL? [Concomitant]
     Active Substance: FENOFIBRATE
     Dosage: 1 DOSAGE FORMS DAILY;
     Route: 048
  5. HYTACAND 16 MG/12,5 MG, COMPRIM? [Concomitant]
     Dosage: 1 DOSAGE FORMS DAILY;
     Route: 048
  6. BISOPROLOL (FUMARATE ACIDE DE) [Suspect]
     Active Substance: BISOPROLOL FUMARATE
     Indication: CONGESTIVE CARDIOMYOPATHY
     Dosage: 1.25 MILLIGRAM DAILY;
     Route: 048
  7. LANSOPRAZOLE. [Concomitant]
     Active Substance: LANSOPRAZOLE
     Dosage: 30 MILLIGRAM DAILY;
     Route: 048
  8. TEGRETOL [Suspect]
     Active Substance: CARBAMAZEPINE
     Indication: DIABETIC NEUROPATHY
     Dosage: DOSAGE NOT KNOWN
     Route: 048
  9. GLUCOR 100 MG, COMPRIM? S?CABLE [Concomitant]
     Dosage: 3 DOSAGE FORMS DAILY;
     Route: 048

REACTIONS (4)
  - Syncope [Recovered/Resolved]
  - Bradycardia [Recovered/Resolved]
  - Hypotension [Recovered/Resolved]
  - Coma [Recovered/Resolved]

NARRATIVE: CASE EVENT DATE: 20171114
